FAERS Safety Report 6936398-X (Version None)
Quarter: 2010Q3

REPORT INFORMATION
  Report Type: 
  Country: None (occurrence: None)
  Receive Date: 20100823
  Receipt Date: 20100817
  Transmission Date: 20110219
  Serious: Yes (Hospitalization, Other)
  Sender: FDA-Public Use
  Company Number: US-B.I. PHARMACEUTICALS,INC./RIDGEFIELD-2010-BP-09367BP

PATIENT
  Sex: Female

DRUGS (8)
  1. SPIRIVA [Suspect]
     Indication: CHRONIC OBSTRUCTIVE PULMONARY DISEASE
     Dosage: 18 MCG
     Route: 055
     Dates: start: 20070101
  2. SPIRIVA [Suspect]
     Route: 048
     Dates: start: 20090801, end: 20090801
  3. ADVAIR DISKUS 100/50 [Concomitant]
     Indication: CHRONIC OBSTRUCTIVE PULMONARY DISEASE
     Route: 055
  4. ENABLEX [Concomitant]
     Indication: INCONTINENCE
     Dosage: 15 MG
     Route: 048
  5. DIPHENOXYLATE [Concomitant]
     Indication: DIARRHOEA
     Route: 048
  6. PRILOSEC (GENERIC) [Concomitant]
     Indication: GASTRIC PH DECREASED
     Dosage: 40 MG
     Route: 048
  7. XOPENEX [Concomitant]
     Indication: CHRONIC OBSTRUCTIVE PULMONARY DISEASE
     Route: 055
  8. FOLIC ACID [Concomitant]
     Indication: PROPHYLAXIS
     Dosage: 1600 MCG
     Route: 048

REACTIONS (8)
  - ANXIETY [None]
  - HEART RATE IRREGULAR [None]
  - INCORRECT ROUTE OF DRUG ADMINISTRATION [None]
  - INSOMNIA [None]
  - LUNG CARCINOMA CELL TYPE UNSPECIFIED STAGE IV [None]
  - LUNG NEOPLASM MALIGNANT [None]
  - NAUSEA [None]
  - PAIN [None]
